FAERS Safety Report 14588572 (Version 1)
Quarter: 2018Q1

REPORT INFORMATION
  Report Type: Report from Study
  Country: None (occurrence: KR)
  Receive Date: 20180301
  Receipt Date: 20180301
  Transmission Date: 20180509
  Serious: Yes (Hospitalization)
  Sender: FDA-Public Use
  Company Number: KR-ABBVIE-17P-090-2078309-00

PATIENT
  Age: 73 Year
  Sex: Male
  Weight: 65.3 kg

DRUGS (33)
  1. DUODOPA [Suspect]
     Active Substance: CARBIDOPA\LEVODOPA
     Dosage: MD 12, CD 3.4, ED 2.5
     Route: 050
     Dates: start: 20170508, end: 20170529
  2. SINEMET [Suspect]
     Active Substance: CARBIDOPA\LEVODOPA
     Route: 048
     Dates: start: 20170529, end: 20170719
  3. LYRICA [Concomitant]
     Active Substance: PREGABALIN
     Indication: LUMBAR RADICULOPATHY
     Route: 048
     Dates: start: 20170412, end: 20170428
  4. OMED [Concomitant]
     Route: 048
     Dates: start: 20160608, end: 20170311
  5. DUODOPA [Suspect]
     Active Substance: CARBIDOPA\LEVODOPA
     Dosage: MD 12, CD 4.4, ED 2.5
     Route: 050
     Dates: start: 20170116, end: 20170508
  6. DUODOPA [Suspect]
     Active Substance: CARBIDOPA\LEVODOPA
     Dosage: MD 12, CD 3.3, ED 2.5
     Route: 050
     Dates: start: 20170529, end: 20170623
  7. HERBEN SR [Concomitant]
     Route: 048
     Dates: start: 20170718
  8. JOINS [Concomitant]
     Indication: SPINAL COLUMN STENOSIS
     Route: 048
     Dates: start: 20170421
  9. DUODOPA [Suspect]
     Active Substance: CARBIDOPA\LEVODOPA
     Indication: PARKINSON^S DISEASE
     Dosage: MD 12, CD 5.6, ED 2.5
     Route: 050
     Dates: start: 20150209, end: 20160201
  10. DUODOPA [Suspect]
     Active Substance: CARBIDOPA\LEVODOPA
     Dosage: MD 12, CD 4.1, ED 2.5
     Route: 050
     Dates: start: 20160328, end: 20160429
  11. SINEMET [Suspect]
     Active Substance: CARBIDOPA\LEVODOPA
     Indication: PARKINSON^S DISEASE
     Route: 048
     Dates: start: 20150210, end: 20161114
  12. MOXIFLOXACIN. [Concomitant]
     Active Substance: MOXIFLOXACIN
     Indication: STOMA SITE HYPERGRANULATION
     Route: 048
     Dates: start: 20170816
  13. DUODOPA [Suspect]
     Active Substance: CARBIDOPA\LEVODOPA
     Dosage: MD 12, CD 5.4, ED 2.5
     Route: 050
     Dates: start: 20160201, end: 20160229
  14. OMED [Concomitant]
     Route: 048
     Dates: start: 20170413, end: 20170428
  15. OMED [Concomitant]
     Route: 048
     Dates: start: 20170628
  16. DUODOPA [Suspect]
     Active Substance: CARBIDOPA\LEVODOPA
     Dosage: MD 12, CD 4.0, ED 2.5
     Route: 050
     Dates: start: 20160429, end: 20160523
  17. DUODOPA [Suspect]
     Active Substance: CARBIDOPA\LEVODOPA
     Dosage: MD 12, CD 4.1, ED 2.5
     Route: 050
     Dates: start: 20160523, end: 20170116
  18. SINEMET [Suspect]
     Active Substance: CARBIDOPA\LEVODOPA
     Route: 048
     Dates: start: 20170719
  19. LYRICA [Concomitant]
     Active Substance: PREGABALIN
     Indication: LUMBAR SPINAL STENOSIS
     Route: 048
     Dates: start: 20150930, end: 20170311
  20. CEREBREX [Concomitant]
     Active Substance: CALCIUM GLYCEROPHOSPHATE\CALCIUM PHOSPHATE\GLUTAMIC ACID\VITAMIN B
     Indication: SPINAL COLUMN STENOSIS
     Route: 048
     Dates: start: 20170412, end: 20170428
  21. MAG-O [Concomitant]
     Indication: CONSTIPATION
     Route: 048
     Dates: start: 20170524, end: 20170820
  22. DUODOPA [Suspect]
     Active Substance: CARBIDOPA\LEVODOPA
     Dosage: MD 12, CD 4.3, ED 2.5
     Route: 050
     Dates: start: 20170623, end: 20170816
  23. DUODOPA [Suspect]
     Active Substance: CARBIDOPA\LEVODOPA
     Dosage: MD 12, CD 4.7, ED 2.5
     Route: 050
     Dates: start: 20160229, end: 20160328
  24. DUODOPA [Suspect]
     Active Substance: CARBIDOPA\LEVODOPA
     Dosage: MD 12, CD 4.2, ED 2.5
     Route: 050
     Dates: start: 20170816
  25. DUODOPA [Suspect]
     Active Substance: CARBIDOPA\LEVODOPA
     Route: 050
     Dates: start: 20170904, end: 20170906
  26. SINEMET [Suspect]
     Active Substance: CARBIDOPA\LEVODOPA
     Route: 048
     Dates: start: 20161226, end: 20170529
  27. HERBEN SR [Concomitant]
     Indication: AORTIC VALVE INCOMPETENCE
     Route: 048
     Dates: start: 20131219, end: 20150618
  28. LYRICA [Concomitant]
     Active Substance: PREGABALIN
     Route: 048
     Dates: start: 20170628, end: 20170820
  29. OMED [Concomitant]
     Indication: TENDONITIS
     Route: 048
     Dates: start: 20160125, end: 20160307
  30. CEREBREX [Concomitant]
     Active Substance: CALCIUM GLYCEROPHOSPHATE\CALCIUM PHOSPHATE\GLUTAMIC ACID\VITAMIN B
     Route: 048
     Dates: start: 20170628, end: 20170820
  31. SINEMET [Suspect]
     Active Substance: CARBIDOPA\LEVODOPA
     Route: 048
     Dates: start: 20161114, end: 20161226
  32. ALBIS [Concomitant]
     Active Substance: BISMUTH SUBCITRATE\RANITIDINE HYDROCHLORIDE\SUCRALFATE
     Indication: GASTRITIS PROPHYLAXIS
     Route: 048
     Dates: start: 20170421
  33. GASTIIN CR [Concomitant]
     Indication: GASTRITIS PROPHYLAXIS
     Route: 048
     Dates: start: 20170524

REACTIONS (2)
  - Ileus [Recovered/Resolved]
  - Pneumonia aspiration [Recovered/Resolved]

NARRATIVE: CASE EVENT DATE: 20170820
